FAERS Safety Report 7608554-9 (Version None)
Quarter: 2011Q3

REPORT INFORMATION
  Report Type: 
  Country: None (occurrence: None)
  Receive Date: 20110714
  Receipt Date: 20110704
  Transmission Date: 20111222
  Serious: Yes (Other)
  Sender: FDA-Public Use
  Company Number: PHHY2010CA52408

PATIENT
  Sex: Female

DRUGS (2)
  1. SANDOSTATIN LAR [Suspect]
     Indication: ACROMEGALY
     Dosage: 10 MG, QMO
     Route: 030
     Dates: start: 20060517
  2. ANTIBIOTICS [Concomitant]

REACTIONS (4)
  - SLEEP APNOEA SYNDROME [None]
  - FATIGUE [None]
  - BLOOD PRESSURE INCREASED [None]
  - HEADACHE [None]
